FAERS Safety Report 4540038-7 (Version None)
Quarter: 2004Q4

REPORT INFORMATION
  Report Type: 
  Country: None (occurrence: None)
  Receive Date: 20041223
  Receipt Date: 20041210
  Transmission Date: 20050328
  Serious: Yes (Hospitalization)
  Sender: FDA-Public Use
  Company Number: 2004109740

PATIENT
  Sex: 0

DRUGS (1)
  1. CELEBREX [Suspect]
     Indication: PAIN

REACTIONS (4)
  - DIZZINESS [None]
  - DRUG HYPERSENSITIVITY [None]
  - FALL [None]
  - WRIST FRACTURE [None]
